FAERS Safety Report 20944875 (Version 1)
Quarter: 2022Q2

REPORT INFORMATION
  Report Type: Spontaneous
  Country: US (occurrence: US)
  Receive Date: 20220610
  Receipt Date: 20220610
  Transmission Date: 20220721
  Serious: No
  Sender: FDA-Public Use
  Company Number: US-BAYER-2022A081371

PATIENT
  Sex: Female

DRUGS (1)
  1. CLARITIN-D 12 HOUR [Suspect]
     Active Substance: LORATADINE\PSEUDOEPHEDRINE SULFATE
     Dosage: UNK
     Dates: start: 20220601, end: 20220601

REACTIONS (5)
  - Anxiety [None]
  - Restless legs syndrome [None]
  - Dizziness [None]
  - Somnolence [None]
  - Product quality issue [None]

NARRATIVE: CASE EVENT DATE: 20220101
